FAERS Safety Report 6319746-3 (Version None)
Quarter: 2009Q3

REPORT INFORMATION
  Report Type: 
  Country: None (occurrence: None)
  Receive Date: 20090822
  Receipt Date: 20080923
  Transmission Date: 20100115
  Serious: No
  Sender: FDA-Public Use
  Company Number: US-ABBOTT-08P-163-0477700-00

PATIENT
  Sex: Female
  Weight: 83.99 kg

DRUGS (3)
  1. NIASPAN [Suspect]
     Indication: BLOOD TRIGLYCERIDES INCREASED
     Route: 048
     Dates: start: 20050101
  2. PROVELLA-14 [Concomitant]
     Indication: MENOPAUSE
     Dosage: 0.45/1.5 MG DAILY
     Route: 048
     Dates: start: 20050101
  3. LEVOTHYROXINE SODIUM [Concomitant]
     Indication: HYPOTHYROIDISM
     Route: 048
     Dates: start: 20010101

REACTIONS (2)
  - FLUSHING [None]
  - HYPERHIDROSIS [None]
